FAERS Safety Report 10608510 (Version 1)
Quarter: 2014Q4

REPORT INFORMATION
  Report Type: Spontaneous
  Country: US (occurrence: US)
  Receive Date: 20141125
  Receipt Date: 20141125
  Transmission Date: 20150529
  Serious: No
  Sender: FDA-Public Use
  Company Number: US-PFIZER INC-2014320948

PATIENT
  Age: 59 Year
  Sex: Male

DRUGS (1)
  1. INLYTA [Suspect]
     Active Substance: AXITINIB
     Indication: RENAL CANCER
     Dosage: 5 MG, 2X/DAY (2 TABLET EVERY MORNING AND 1 TABLET AT BEDTIME)
     Dates: start: 20140609

REACTIONS (5)
  - Diarrhoea [Not Recovered/Not Resolved]
  - Chills [Unknown]
  - Fatigue [Unknown]
  - Decreased appetite [Unknown]
  - Somnolence [Unknown]
